FAERS Safety Report 11242566 (Version 2)
Quarter: 2015Q3

REPORT INFORMATION
  Report Type: Spontaneous
  Country: JP (occurrence: None)
  Receive Date: 20150702
  Receipt Date: 20150713
  Transmission Date: 20151125
  Serious: Yes (Disabling, Other)
  Sender: FDA-Public Use
  Company Number: 2014-19891

PATIENT
  Age: 75 Year
  Sex: Female

DRUGS (3)
  1. EYLEA [Suspect]
     Active Substance: AFLIBERCEPT
     Indication: MACULAR DEGENERATION
     Route: 031
     Dates: start: 20130524, end: 20130524
  2. EYLEA [Suspect]
     Active Substance: AFLIBERCEPT
     Indication: AGE-RELATED MACULAR DEGENERATION
     Route: 031
     Dates: start: 20130524, end: 20130524
  3. EYLEA [Suspect]
     Active Substance: AFLIBERCEPT
     Indication: OEDEMA
     Route: 031
     Dates: start: 20130524, end: 20130524

REACTIONS (2)
  - Retinal oedema [None]
  - Retinal pigment epithelial tear [None]

NARRATIVE: CASE EVENT DATE: 20130628
